FAERS Safety Report 4634368-8 (Version None)
Quarter: 2005Q2

REPORT INFORMATION
  Report Type: 
  Country: None (occurrence: None)
  Receive Date: 20050411
  Receipt Date: 20050328
  Transmission Date: 20051028
  Serious: Yes (Death)
  Sender: FDA-Public Use
  Company Number: 2005051065

PATIENT
  Age: 84 Year
  Sex: Male

DRUGS (6)
  1. CABERGOLINE [Suspect]
     Indication: PARKINSON'S DISEASE
     Dosage: 2 MG DAILY, ORAL; 4 MG DAILY ORAL; 0.5 MG DAILY, ORAL
     Route: 048
     Dates: start: 20040406
  2. CABERGOLINE [Suspect]
     Indication: PARKINSON'S DISEASE
     Dosage: 2 MG DAILY, ORAL; 4 MG DAILY ORAL; 0.5 MG DAILY, ORAL
     Route: 048
     Dates: start: 20040909
  3. CABERGOLINE [Suspect]
     Indication: PARKINSON'S DISEASE
     Dosage: 2 MG DAILY, ORAL; 4 MG DAILY ORAL; 0.5 MG DAILY, ORAL
     Route: 048
     Dates: start: 20040915
  4. MADOPAR (BENSERAZIDE HYDROCHLORIDE, LEVODOPA) [Concomitant]
  5. ENTACAPONE (ENTACAPONE) [Concomitant]
  6. CLOZAPINE [Concomitant]

REACTIONS (4)
  - AGITATION [None]
  - COUGH [None]
  - FATIGUE [None]
  - LOSS OF CONSCIOUSNESS [None]
